FAERS Safety Report 4485076-8 (Version None)
Quarter: 2004Q4

REPORT INFORMATION
  Report Type: 
  Country: None (occurrence: None)
  Receive Date: 20040921
  Receipt Date: 20031124
  Transmission Date: 20050328
  Serious: Yes (Hospitalization)
  Sender: FDA-Public Use
  Company Number: 163-20785-03040136(1)

PATIENT
  Age: 64 Year
  Sex: Female

DRUGS (16)
  1. THALOMID [Suspect]
     Indication: MULTIPLE MYELOMA
     Dosage: 200 MG, DAILY, ORAL
     Route: 048
     Dates: start: 20030225, end: 20030307
  2. PS-341 (INVESTIGATIONAL DRUG) [Suspect]
     Indication: MULTIPLE MYELOMA
     Dates: start: 20030204, end: 20030307
  3. FLAGYL (METERONIDAZOLE) [Concomitant]
  4. IMIPENEM (IMIPENEM) [Concomitant]
  5. FLUCONAZOLE [Concomitant]
  6. PROCRIT [Concomitant]
  7. MULTIVITAMIN [Concomitant]
  8. VANCOMYCIN [Concomitant]
  9. RIFAMPICIN [Concomitant]
  10. DILAUDID [Concomitant]
  11. ATIVAN [Concomitant]
  12. AMBIEN [Concomitant]
  13. TYLENOL [Concomitant]
  14. BENADRYL [Concomitant]
  15. MILK OF MAGNESIA (MAGNESIUM HYDROXIDE) [Concomitant]
  16. FOLIC ACID [Concomitant]

REACTIONS (29)
  - ALOPECIA [None]
  - ANAEMIA [None]
  - ASCITES [None]
  - ASTHENIA [None]
  - BREATH SOUNDS DECREASED [None]
  - C-REACTIVE PROTEIN INCREASED [None]
  - CACHEXIA [None]
  - CANDIDIASIS [None]
  - CLOSTRIDIUM COLITIS [None]
  - CONFUSIONAL STATE [None]
  - DIARRHOEA [None]
  - DISEASE PROGRESSION [None]
  - DYSPNOEA [None]
  - ECCHYMOSIS [None]
  - GENERALISED OEDEMA [None]
  - HEPATOMEGALY [None]
  - HYPOXIA [None]
  - LIVER FUNCTION TEST [None]
  - LIVER FUNCTION TEST ABNORMAL [None]
  - LUNG INFILTRATION [None]
  - MALIGNANT PLEURAL EFFUSION [None]
  - OEDEMA PERIPHERAL [None]
  - PERICARDIAL EFFUSION [None]
  - PROTEIN URINE [None]
  - PROTEIN URINE PRESENT [None]
  - PSEUDOMONAL BACTERAEMIA [None]
  - PYREXIA [None]
  - TACHYCARDIA [None]
  - THROMBOCYTOPENIA [None]
